FAERS Safety Report 7835405-X (Version None)
Quarter: 2011Q4

REPORT INFORMATION
  Report Type: 
  Country: None (occurrence: None)
  Receive Date: 20111024
  Receipt Date: 20111024
  Transmission Date: 20120403
  Serious: Yes (Other)
  Sender: FDA-Public Use
  Company Number: GB-ABBOTT-11P-167-0849205-00

PATIENT
  Sex: Female
  Weight: 64 kg

DRUGS (2)
  1. LEVOTHYROXINE SODIUM [Concomitant]
     Indication: HYPERTHYROIDISM
     Dosage: 100MCG AND 25MCG, 1 IN 1 DAY, OD
     Route: 048
     Dates: start: 19970515
  2. HUMIRA [Suspect]
     Indication: RHEUMATOID ARTHRITIS
     Dosage: 1 EVERT 2 WEEKS, FORTNIGHTLY
     Route: 058
     Dates: start: 20110302

REACTIONS (2)
  - BACK PAIN [None]
  - ABDOMINAL DISTENSION [None]
